FAERS Safety Report 9430748 (Version 1)
Quarter: 2013Q3

REPORT INFORMATION
  Report Type: Spontaneous
  Country: IN (occurrence: None)
  Receive Date: 20130726
  Receipt Date: 20130726
  Transmission Date: 20140515
  Serious: Yes (Death, Hospitalization)
  Sender: FDA-Public Use
  Company Number: UCM201307-000039

PATIENT
  Age: 12 Year
  Sex: Male

DRUGS (3)
  1. LAMOTRIGINE [Suspect]
     Route: 048
  2. SODIUM VALPROATE [Suspect]
  3. CLONAZEPAM (CLONAZEPAM) (CLONAZEPAM) [Concomitant]

REACTIONS (9)
  - Toxic epidermal necrolysis [None]
  - Respiratory failure [None]
  - Drug interaction [None]
  - Delirium [None]
  - Disorientation [None]
  - Stevens-Johnson syndrome [None]
  - Pyrexia [None]
  - Heart rate increased [None]
  - Respiratory rate increased [None]
